FAERS Safety Report 13194585 (Version 1)
Quarter: 2017Q1

REPORT INFORMATION
  Report Type: Spontaneous
  Country: US (occurrence: US)
  Receive Date: 20170207
  Receipt Date: 20170207
  Transmission Date: 20170428
  Serious: Yes (Hospitalization)
  Sender: FDA-Public Use
  Company Number: US-MYLANLABS-2017M1006723

PATIENT

DRUGS (2)
  1. DISULFIRAM. [Suspect]
     Active Substance: DISULFIRAM
     Indication: ALCOHOL USE
     Dosage: 250 MG/DAY
     Route: 065
  2. AMFETAMINE/DEXAMFETAMINE [Interacting]
     Active Substance: AMPHETAMINE SULFATE\DEXTROAMPHETAMINE
     Indication: ATTENTION DEFICIT/HYPERACTIVITY DISORDER
     Dosage: 30 MG/DAY; EXTENDED RELEASE
     Route: 065

REACTIONS (3)
  - Drug interaction [Recovered/Resolved]
  - Delusion [None]
  - Substance-induced psychotic disorder [Recovered/Resolved]
